FAERS Safety Report 15223411 (Version 1)
Quarter: 2018Q3

REPORT INFORMATION
  Report Type: Spontaneous
  Country: US (occurrence: US)
  Receive Date: 20180731
  Receipt Date: 20180731
  Transmission Date: 20181010
  Serious: Yes (Hospitalization)
  Sender: FDA-Public Use
  Company Number: US-MYLANLABS-2018M1057010

PATIENT
  Age: 43 Year
  Sex: Female

DRUGS (1)
  1. MAGNESIUM [Suspect]
     Active Substance: MAGNESIUM
     Indication: PRODUCT USED FOR UNKNOWN INDICATION
     Dosage: 250 MG, PILL
     Route: 050

REACTIONS (3)
  - Foreign body aspiration [Recovered/Resolved]
  - Atelectasis [Recovered/Resolved]
  - Pneumonia aspiration [Recovered/Resolved]
